FAERS Safety Report 9994656 (Version 1)
Quarter: 2014Q1

REPORT INFORMATION
  Report Type: Spontaneous
  Country: US (occurrence: None)
  Receive Date: 20140306
  Receipt Date: 20140306
  Transmission Date: 20141002
  Serious: Yes (Other)
  Sender: FDA-Public Use
  Company Number: 2159897

PATIENT
  Age: 11 Year
  Sex: Female
  Weight: 40.8 kg

DRUGS (7)
  1. MORPHINE SULFATE [Suspect]
     Indication: PAIN
     Route: 042
     Dates: start: 20140103
  2. MORPHINE SULFATE [Suspect]
     Indication: PAIN
     Route: 042
     Dates: start: 20140103
  3. SODIUM CHLORIDE [Concomitant]
  4. ACETAMINOPHEN [Concomitant]
  5. CEFTRIAXONE [Concomitant]
  6. DEXTROSE WATER [Concomitant]
  7. METRONIDAZOLE [Concomitant]

REACTIONS (4)
  - Chest discomfort [None]
  - Dyspnoea [None]
  - Colonic abscess [None]
  - Appendicitis perforated [None]
